FAERS Safety Report 4322493-0 (Version None)
Quarter: 2004Q1

REPORT INFORMATION
  Report Type: 
  Country: None (occurrence: None)
  Receive Date: 20040319
  Receipt Date: 20040308
  Transmission Date: 20041129
  Serious: Yes (Hospitalization)
  Sender: FDA-Public Use
  Company Number: 04P-087-0252775-00

PATIENT
  Age: 32 Year
  Sex: Female

DRUGS (4)
  1. BIAXIN [Suspect]
     Indication: HELICOBACTER INFECTION
     Dosage: 2 IN 1 D, PER ORAL
     Route: 048
     Dates: start: 20040114, end: 20040120
  2. LANSOPRAZOLE [Suspect]
     Indication: GASTRIC ULCER
     Dosage: 30 MG, 2 IN 1 D, PER ORAL
     Route: 048
     Dates: start: 20040114, end: 20040120
  3. LANSOPRAZOLE [Suspect]
     Indication: HELICOBACTER INFECTION
     Dosage: 30 MG, 2 IN 1 D, PER ORAL
     Route: 048
     Dates: start: 20040114, end: 20040120
  4. AMOXICILLIN [Suspect]
     Indication: HELICOBACTER INFECTION
     Dosage: 2 IN 1 D, PER ORAL
     Route: 048
     Dates: start: 20040114, end: 20040120

REACTIONS (1)
  - PANCYTOPENIA [None]
